FAERS Safety Report 16886297 (Version 1)
Quarter: 2019Q4

REPORT INFORMATION
  Report Type: Spontaneous
  Country: PL (occurrence: PL)
  Receive Date: 20191004
  Receipt Date: 20191004
  Transmission Date: 20200122
  Serious: Yes (Other)
  Sender: FDA-Public Use
  Company Number: PL-AMGEN-POLSP2019158118

PATIENT
  Age: 52 Year
  Sex: Female

DRUGS (9)
  1. PANITUMUMAB [Suspect]
     Active Substance: PANITUMUMAB
     Indication: METASTASES TO LIVER
     Dosage: DOSE REDUCED TO 80%, Q2WK (CYCLICAL)
     Route: 065
     Dates: start: 2018
  2. OXALIPLATIN. [Suspect]
     Active Substance: OXALIPLATIN
     Indication: METASTASES TO LIVER
     Dosage: 65 MILLIGRAM/SQ. METER, Q2WK (REDUCED DOSE)
     Route: 042
  3. FLUOROURACIL. [Concomitant]
     Active Substance: FLUOROURACIL
     Indication: COLORECTAL CANCER
     Dosage: UNK UNK, Q2WK
     Route: 065
     Dates: start: 20180807
  4. FLUOROURACIL. [Concomitant]
     Active Substance: FLUOROURACIL
     Indication: METASTASES TO LIVER
  5. PANITUMUMAB [Suspect]
     Active Substance: PANITUMUMAB
     Indication: COLORECTAL CANCER
     Dosage: UNK UNK, Q2WK (CYCLICAL)
     Route: 065
     Dates: start: 20180807
  6. FOLINIC ACID [Concomitant]
     Active Substance: LEUCOVORIN
     Indication: COLORECTAL CANCER
     Dosage: UNK UNK, Q2WK
     Route: 065
     Dates: start: 20180807
  7. PANITUMUMAB [Suspect]
     Active Substance: PANITUMUMAB
     Dosage: DOSE REDUCED TO 60%, Q2WK (CYCLICAL)
     Route: 065
     Dates: start: 2019
  8. OXALIPLATIN. [Suspect]
     Active Substance: OXALIPLATIN
     Indication: COLORECTAL CANCER
     Dosage: UNK, Q2WK
     Route: 042
     Dates: start: 20180807
  9. FOLINIC ACID [Concomitant]
     Active Substance: LEUCOVORIN
     Indication: METASTASES TO LIVER

REACTIONS (3)
  - Neuropathy peripheral [Recovering/Resolving]
  - Urticaria [Recovered/Resolved]
  - Skin toxicity [Unknown]

NARRATIVE: CASE EVENT DATE: 2018
